FAERS Safety Report 5507319-1 (Version None)
Quarter: 2007Q4

REPORT INFORMATION
  Report Type: 
  Country: None (occurrence: None)
  Receive Date: 20071102
  Receipt Date: 20071024
  Transmission Date: 20080405
  Serious: Yes (Death)
  Sender: FDA-Public Use
  Company Number: FABR-12247

PATIENT
  Sex: Female

DRUGS (1)
  1. FABRAZYME [Suspect]
     Indication: FABRY'S DISEASE
     Dosage: 70 MG Q2WKS IV
     Route: 042
     Dates: start: 20031016

REACTIONS (5)
  - GASTROINTESTINAL HAEMORRHAGE [None]
  - HAEMATEMESIS [None]
  - HYPOVOLAEMIC SHOCK [None]
  - NAUSEA [None]
  - VOMITING [None]
